FAERS Safety Report 5832217-3 (Version None)
Quarter: 2008Q3

REPORT INFORMATION
  Report Type: 
  Country: None (occurrence: None)
  Receive Date: 20080730
  Receipt Date: 20080715
  Transmission Date: 20090109
  Serious: Yes (Hospitalization)
  Sender: FDA-Public Use
  Company Number: 1-16425101/MED-08141

PATIENT
  Age: 3 Year
  Sex: Female

DRUGS (2)
  1. BACTRIM [Suspect]
     Indication: HEPATITIS A
     Dosage: ORAL
     Route: 048
  2. CEFIXIME CHEWABLE [Suspect]
     Indication: HEPATITIS A
     Dosage: ORAL
     Route: 048

REACTIONS (3)
  - DRUG RASH WITH EOSINOPHILIA AND SYSTEMIC SYMPTOMS [None]
  - RENAL FAILURE [None]
  - RENAL TUBULAR NECROSIS [None]
